FAERS Safety Report 14689727 (Version 1)
Quarter: 2018Q1

REPORT INFORMATION
  Report Type: Spontaneous
  Country: US (occurrence: US)
  Receive Date: 20180328
  Receipt Date: 20180328
  Transmission Date: 20180509
  Serious: Yes (Hospitalization)
  Sender: FDA-Public Use
  Company Number: US-PFIZER INC-2018122063

PATIENT
  Age: 57 Year
  Sex: Male
  Weight: 151.95 kg

DRUGS (7)
  1. CARVEDILOL. [Concomitant]
     Active Substance: CARVEDILOL
     Indication: ATRIAL FIBRILLATION
     Dosage: 25 MG, 2X/DAY
     Route: 048
     Dates: start: 201409
  2. ATORVASTATIN [Concomitant]
     Active Substance: ATORVASTATIN
     Indication: BLOOD CHOLESTEROL ABNORMAL
     Dosage: 20 MG, 1X/DAY (AT NIGHT)
     Route: 048
     Dates: start: 201409
  3. ELIQUIS [Concomitant]
     Active Substance: APIXABAN
     Indication: BLOOD VISCOSITY INCREASED
     Dosage: 5 MG, 2X/DAY
     Route: 048
     Dates: start: 201409
  4. QUINAPRIL. [Concomitant]
     Active Substance: QUINAPRIL
     Indication: CARDIOVASCULAR DISORDER
     Dosage: 10 MG, 1X/DAY(AT NIGHT)
     Route: 048
     Dates: start: 201409
  5. FUROSEMIDE. [Concomitant]
     Active Substance: FUROSEMIDE
     Indication: FLUID RETENTION
     Dosage: 40 MG, 1X/DAY
     Route: 048
     Dates: start: 201409
  6. SPIRONOLACTONE. [Concomitant]
     Active Substance: SPIRONOLACTONE
     Indication: FLUID RETENTION
     Dosage: 25 MG, 1X/DAY (25MG TABLET BY MOUTH ONCE DAILY IN THE MORNING)
     Route: 048
     Dates: start: 201409
  7. TIKOSYN [Suspect]
     Active Substance: DOFETILIDE
     Indication: ATRIAL FIBRILLATION
     Dosage: 500 UG, 2X/DAY
     Route: 048
     Dates: start: 201409

REACTIONS (4)
  - Arrhythmia [Unknown]
  - Syncope [Unknown]
  - Nervousness [Unknown]
  - Epinephrine increased [Unknown]

NARRATIVE: CASE EVENT DATE: 20180313
